FAERS Safety Report 9667867 (Version 4)
Quarter: 2013Q4

REPORT INFORMATION
  Report Type: Spontaneous
  Country: JP (occurrence: JP)
  Receive Date: 20131104
  Receipt Date: 20131202
  Transmission Date: 20140711
  Serious: Yes (Other)
  Sender: FDA-Public Use
  Company Number: JP-PFIZER INC-2013313225

PATIENT
  Age: 57 Year
  Sex: Male

DRUGS (2)
  1. ANCARON [Suspect]
     Indication: ARRHYTHMIA
     Dosage: 200 MG, DAILY
     Route: 048
     Dates: start: 20130418, end: 20131027
  2. WARFARIN POTASSIUM [Interacting]
     Dosage: UNK
     Route: 048
     Dates: end: 20131027

REACTIONS (5)
  - Drug interaction [Unknown]
  - Prothrombin time prolonged [Unknown]
  - Ear injury [Recovered/Resolved]
  - Ear haemorrhage [Recovered/Resolved]
  - Cholestasis [Unknown]
